FAERS Safety Report 4823655-6 (Version None)
Quarter: 2005Q4

REPORT INFORMATION
  Report Type: 
  Country: None (occurrence: None)
  Receive Date: 20051109
  Receipt Date: 20051103
  Transmission Date: 20060501
  Serious: Yes (Life-Threatening, Hospitalization, Other)
  Sender: FDA-Public Use
  Company Number: GB-GLAXOSMITHKLINE-B0399441A

PATIENT
  Age: 91 Year
  Sex: Female

DRUGS (8)
  1. BACTROBAN [Suspect]
     Indication: INFECTION PROPHYLAXIS
     Route: 061
  2. UNISEPT [Suspect]
     Indication: INFECTION PROPHYLAXIS
     Route: 061
  3. VENOFER [Concomitant]
     Indication: IRON DEFICIENCY
     Dosage: 200MG WEEKLY
     Route: 065
     Dates: start: 20051007
  4. AMLODIPINE [Concomitant]
     Indication: HYPERTENSION
     Dosage: 5MG IN THE MORNING
     Route: 048
     Dates: start: 20050917
  5. ASPIRIN [Concomitant]
     Indication: PROPHYLAXIS
     Dosage: 300MG IN THE MORNING
     Route: 048
     Dates: start: 20050913
  6. TEMAZEPAM [Concomitant]
     Indication: INSOMNIA
     Dosage: 10MG AT NIGHT
     Route: 048
     Dates: start: 20050728
  7. RANITIDINE [Concomitant]
     Indication: PROPHYLAXIS AGAINST GASTROINTESTINAL ULCER
     Dosage: 150MG TWICE PER DAY
     Route: 048
     Dates: start: 20050705
  8. NEORECORMON [Concomitant]
     Indication: NEPHROGENIC ANAEMIA
     Dosage: 4000UNIT THREE TIMES PER WEEK
     Route: 058

REACTIONS (1)
  - BLISTER [None]
